FAERS Safety Report 5908726-5 (Version None)
Quarter: 2008Q4

REPORT INFORMATION
  Report Type: 
  Country: None (occurrence: None)
  Receive Date: 20081006
  Receipt Date: 20080925
  Transmission Date: 20090506
  Serious: Yes (Life-Threatening, Hospitalization)
  Sender: FDA-Public Use
  Company Number: B0538744A

PATIENT
  Age: 34 Year
  Sex: Male
  Weight: 90 kg

DRUGS (6)
  1. ARIXTRA [Suspect]
     Indication: PROPHYLAXIS
     Dosage: 2.5MG PER DAY
     Route: 058
     Dates: start: 20080504, end: 20080829
  2. TEGRETOL [Concomitant]
     Dosage: 600MG PER DAY
     Route: 065
  3. KEPPRA [Concomitant]
     Dosage: 500MG TWICE PER DAY
     Route: 065
  4. TOPIRAMATE [Concomitant]
     Route: 065
  5. HYDROCORTISONE [Concomitant]
     Route: 065
  6. LEVOTHYROX [Concomitant]
     Route: 065

REACTIONS (14)
  - ALTERED STATE OF CONSCIOUSNESS [None]
  - BRADYCARDIA [None]
  - CEREBRAL HAEMORRHAGE [None]
  - COMA [None]
  - HYDROCEPHALUS [None]
  - HYPOTENSION [None]
  - HYPOTHERMIA [None]
  - INCORRECT DRUG ADMINISTRATION DURATION [None]
  - INTRACRANIAL HAEMATOMA [None]
  - MYDRIASIS [None]
  - PAIN [None]
  - PIGMENTATION DISORDER [None]
  - SOMNOLENCE [None]
  - VOMITING [None]
